FAERS Safety Report 5392728-4 (Version None)
Quarter: 2007Q3

REPORT INFORMATION
  Report Type: 
  Country: None (occurrence: None)
  Receive Date: 20070720
  Receipt Date: 20070710
  Transmission Date: 20080115
  Serious: Yes (Other)
  Sender: FDA-Public Use
  Company Number: ES-PFIZER INC-2007056886

PATIENT
  Age: 25 Year
  Sex: Male

DRUGS (6)
  1. LINEZOLID [Suspect]
  2. PIPERACILLIN AND TAZOBACTAM [Concomitant]
  3. METRONIDAZOLE [Concomitant]
  4. GENTAMICIN [Concomitant]
  5. TEICOPLANIN [Concomitant]
  6. MEROPENEM [Concomitant]

REACTIONS (2)
  - ANTIMICROBIAL SUSCEPTIBILITY TEST RESISTANT [None]
  - DRUG INEFFECTIVE [None]
